FAERS Safety Report 4372321-2 (Version None)
Quarter: 2004Q2

REPORT INFORMATION
  Report Type: 
  Country: None (occurrence: None)
  Receive Date: 20040602
  Receipt Date: 20040524
  Transmission Date: 20050107
  Serious: Yes (Death)
  Sender: FDA-Public Use
  Company Number: 040527-0000364

PATIENT
  Age: 47 Year
  Sex: Female

DRUGS (1)
  1. METHAMPHETAMINE HCL [Suspect]
     Dosage: UNKNOWN
     Route: 065

REACTIONS (1)
  - DRUG TOXICITY [None]
